FAERS Safety Report 12156340 (Version 2)
Quarter: 2016Q2

REPORT INFORMATION
  Report Type: Spontaneous
  Country: JP (occurrence: JP)
  Receive Date: 20160307
  Receipt Date: 20160628
  Transmission Date: 20160815
  Serious: Yes (Death, Life-Threatening, Hospitalization, Other)
  Sender: FDA-Public Use
  Company Number: JP-ELI_LILLY_AND_COMPANY-JP201602007100

PATIENT
  Age: 67 Year
  Sex: Male
  Weight: 67.6 kg

DRUGS (2)
  1. CYRAMZA [Suspect]
     Active Substance: RAMUCIRUMAB
     Indication: GASTRIC CANCER STAGE IV
     Dosage: 8 MG/KG, OTHER
     Route: 042
     Dates: start: 20151028, end: 20160106
  2. PACLITAXEL. [Suspect]
     Active Substance: PACLITAXEL
     Indication: GASTRIC CANCER STAGE IV
     Dosage: 56 MG/M2, OTHER
     Route: 042
     Dates: start: 20151209, end: 20160113

REACTIONS (6)
  - Malaise [Unknown]
  - Neutropenia [Recovering/Resolving]
  - Pulmonary embolism [Unknown]
  - Peritonitis [Fatal]
  - Gastrointestinal perforation [Fatal]
  - Tumour haemorrhage [Recovered/Resolved]

NARRATIVE: CASE EVENT DATE: 20160118
